FAERS Safety Report 6308328-5 (Version None)
Quarter: 2009Q3

REPORT INFORMATION
  Report Type: 
  Country: None (occurrence: None)
  Receive Date: 20090807
  Receipt Date: 20090727
  Transmission Date: 20100115
  Serious: Yes (Hospitalization)
  Sender: FDA-Public Use
  Company Number: 238300K09USA

PATIENT
  Age: 35 Year
  Sex: Male
  Weight: 109 kg

DRUGS (5)
  1. REBIF [Suspect]
     Indication: MULTIPLE SCLEROSIS
     Dosage: 44 MCG, 3 IN 1 WEEKS, SUBCUTANEOUS
     Route: 058
     Dates: start: 20050608
  2. BLOOD PRESSURE MEDICATION (ANTIHYPERTENSIVES) [Concomitant]
  3. SIMVASTATIN [Concomitant]
  4. OMEPRAZOLE [Concomitant]
  5. IBUPROFEN [Concomitant]

REACTIONS (1)
  - NEPHROLITHIASIS [None]
